FAERS Safety Report 5274042-0 (Version None)
Quarter: 2007Q1

REPORT INFORMATION
  Report Type: 
  Country: None (occurrence: None)
  Receive Date: 20061218
  Receipt Date: 20051123
  Transmission Date: 20070707
  Serious: Yes (Hospitalization)
  Sender: FDA-Public Use
  Company Number: 147-H-02-A0100

PATIENT
  Age: 43 Year
  Sex: Female

DRUGS (1)
  1. MEPIVACIANE 3%/NOVOCOL PHARMACEUTICAL OF CANADA, INC [Suspect]
     Indication: NERVE BLOCK

REACTIONS (5)
  - ANXIETY [None]
  - DYSPNOEA [None]
  - HYPERHIDROSIS [None]
  - NAUSEA [None]
  - TREMOR [None]
